FAERS Safety Report 20969604 (Version 1)
Quarter: 2022Q2

REPORT INFORMATION
  Report Type: Other
  Country: JP (occurrence: None)
  Receive Date: 20220616
  Receipt Date: 20220616
  Transmission Date: 20220721
  Serious: Yes (Death)
  Sender: FDA-Public Use
  Company Number: JP-ROCHE-3119278

PATIENT
  Age: 42 Year
  Sex: Male

DRUGS (10)
  1. RITUXIMAB [Suspect]
     Active Substance: RITUXIMAB
     Indication: Castleman^s disease
     Route: 041
  2. METHYLPREDNISOLONE [Suspect]
     Active Substance: METHYLPREDNISOLONE
     Indication: Castleman^s disease
     Route: 065
  3. PREDNISOLONE [Suspect]
     Active Substance: PREDNISOLONE
     Indication: Castleman^s disease
     Route: 065
  4. TOZINAMERAN [Concomitant]
     Active Substance: TOZINAMERAN
  5. TOCILIZUMAB [Concomitant]
     Active Substance: TOCILIZUMAB
     Route: 065
  6. CEFMETAZOLE [Concomitant]
     Active Substance: CEFMETAZOLE
  7. LEVOFLOXACIN [Concomitant]
     Active Substance: LEVOFLOXACIN
  8. IMIPENEM [Concomitant]
     Active Substance: IMIPENEM
  9. TIGECYCLINE [Concomitant]
     Active Substance: TIGECYCLINE
  10. COLISTIN [Concomitant]
     Active Substance: COLISTIN

REACTIONS (2)
  - Klebsiella bacteraemia [Fatal]
  - Off label use [Unknown]
